FAERS Safety Report 5181202-6 (Version None)
Quarter: 2006Q4

REPORT INFORMATION
  Report Type: 
  Country: None (occurrence: None)
  Receive Date: 20061212
  Receipt Date: 20061129
  Transmission Date: 20070319
  Serious: Yes (Disabling, Other)
  Sender: FDA-Public Use
  Company Number: 2006096556

PATIENT
  Age: 76 Year
  Sex: Male
  Weight: 82.5 kg

DRUGS (8)
  1. SUTENT [Suspect]
     Indication: MALIGNANT MELANOMA
     Dosage: 25 MG (25 MG, 1 IN 1 D), ORAL
     Route: 048
     Dates: start: 20060608, end: 20060804
  2. CARBOPLATIN [Suspect]
     Indication: MALIGNANT MELANOMA
     Dosage: UNIT DOSE: AUC=4.5 (1 IN 21 D), INTRAVENOUS
     Route: 042
     Dates: start: 20060608, end: 20060804
  3. TAXOL [Suspect]
     Indication: MALIGNANT MELANOMA
     Dosage: 284 MG (135 MG/M*2, 1 IN 21 D), INTRAVENOUS
     Route: 042
     Dates: start: 20060615, end: 20060728
  4. PAROXETINE [Concomitant]
  5. TYLENOL [Concomitant]
  6. LISINOPRIL [Concomitant]
  7. MULTIVITAMIN [Concomitant]
  8. MILK OF MAGNESIA TAB [Concomitant]

REACTIONS (8)
  - BLINDNESS [None]
  - DRUG TOXICITY [None]
  - HYPERTENSION [None]
  - MACULAR DEGENERATION [None]
  - OPTIC ISCHAEMIC NEUROPATHY [None]
  - PAPILLOEDEMA [None]
  - RETINAL EXUDATES [None]
  - VITREOUS FLOATERS [None]
